FAERS Safety Report 5573249-2 (Version None)
Quarter: 2007Q4

REPORT INFORMATION
  Report Type: 
  Country: None (occurrence: None)
  Receive Date: 20071220
  Receipt Date: 20071214
  Transmission Date: 20080405
  Serious: Yes (Other)
  Sender: FDA-Public Use
  Company Number: 2007334432

PATIENT
  Age: 66 Year
  Sex: Female
  Weight: 51.2565 kg

DRUGS (2)
  1. NATURAL CITRUS LISTERINE (MENTHOL, METHYLSALICYLATE, EUCALYPTOL, THYMO [Suspect]
     Indication: DENTAL DISORDER PROPHYLAXIS
     Dosage: MOUTHFUL 10-15 TIMES A DAY, ORAL
     Route: 048
     Dates: end: 20071030
  2. COZAAR [Concomitant]

REACTIONS (3)
  - CHOKING [None]
  - COUGH [None]
  - PHARYNGEAL CANDIDIASIS [None]
